FAERS Safety Report 24654738 (Version 2)
Quarter: 2024Q4

REPORT INFORMATION
  Report Type: Spontaneous
  Country: US (occurrence: US)
  Receive Date: 20241122
  Receipt Date: 20241207
  Transmission Date: 20250115
  Serious: Yes (Hospitalization, Other)
  Sender: AIMMUNE
  Company Number: US-ZENPEP LLC-2024AIMT01562

PATIENT

DRUGS (10)
  1. ZENPEP [Suspect]
     Active Substance: PANCRELIPASE AMYLASE\PANCRELIPASE LIPASE\PANCRELIPASE PROTEASE
     Indication: Pancreatic carcinoma
     Dosage: UNK, TWO TIMES A DAY
     Route: 048
  2. ZENPEP [Suspect]
     Active Substance: PANCRELIPASE AMYLASE\PANCRELIPASE LIPASE\PANCRELIPASE PROTEASE
     Dosage: UNK, ONCE, LAST DOSE PRIOR TO THE EVENTS
     Route: 048
  3. MIRTAZAPINE [Concomitant]
     Active Substance: MIRTAZAPINE
     Indication: Product used for unknown indication
     Dosage: 15 MG, 2X/DAY
  4. SEVELAMER [Concomitant]
     Active Substance: SEVELAMER
     Indication: Product used for unknown indication
     Dosage: 80 MG, 3X/DAY
  5. AMOXICILLIN [Concomitant]
     Active Substance: AMOXICILLIN
     Indication: Sepsis
  6. TAMSULOSIN [Concomitant]
     Active Substance: TAMSULOSIN
     Indication: Product used for unknown indication
     Dosage: 0.4 MG, 2X/DAY
  7. SEROQUEL [Concomitant]
     Active Substance: QUETIAPINE FUMARATE
     Indication: Product used for unknown indication
     Dosage: 25 MG AT NIGHT
  8. FLUDROCORTISONE [Concomitant]
     Active Substance: FLUDROCORTISONE
     Indication: Product used for unknown indication
     Dosage: 0.1 MG, 1X/DAY
  9. INSULIN NOS [Concomitant]
     Active Substance: INSULIN NOS
     Indication: Diabetes mellitus
  10. PROBIOTICS NOS [Concomitant]
     Active Substance: PROBIOTICS NOS
     Indication: Product used for unknown indication

REACTIONS (7)
  - Metastases to lung [Unknown]
  - Sepsis [Unknown]
  - Diabetes mellitus [Unknown]
  - Cardiac failure [Unknown]
  - Asthenia [Unknown]
  - Inability to afford medication [Unknown]
  - Weight decreased [Unknown]
